FAERS Safety Report 11826550 (Version 1)
Quarter: 2015Q4

REPORT INFORMATION
  Report Type: Spontaneous
  Country: DK (occurrence: FR)
  Receive Date: 20151211
  Receipt Date: 20151211
  Transmission Date: 20160305
  Serious: Yes (Congenital Anomaly)
  Sender: FDA-Public Use
  Company Number: FR-FRI-1000081462

PATIENT
  Age: 0 Year
  Sex: Female
  Weight: 1.77 kg

DRUGS (5)
  1. BACLOFEN ZENTIVA [Suspect]
     Active Substance: BACLOFEN
     Indication: ALCOHOLISM
     Dosage: 21 DOSAGE FORMS
     Route: 064
  2. BACLOFEN ZENTIVA [Suspect]
     Active Substance: BACLOFEN
     Dosage: 12 DOSAGE FORMS
     Route: 064
     Dates: start: 20151105
  3. ESCITALOPRAM [Suspect]
     Active Substance: ESCITALOPRAM OXALATE
     Indication: PRODUCT USED FOR UNKNOWN INDICATION
     Dosage: 1 DOSAGE FORM
     Route: 064
  4. SERESTA [Suspect]
     Active Substance: OXAZEPAM
     Indication: PRODUCT USED FOR UNKNOWN INDICATION
     Route: 064
     Dates: end: 20151105
  5. XANAX [Suspect]
     Active Substance: ALPRAZOLAM
     Indication: PRODUCT USED FOR UNKNOWN INDICATION
     Route: 064
     Dates: end: 20151105

REACTIONS (3)
  - Foetal exposure during pregnancy [Recovered/Resolved]
  - Low birth weight baby [Not Recovered/Not Resolved]
  - Foetal malnutrition [Not Recovered/Not Resolved]

NARRATIVE: CASE EVENT DATE: 20140902
